FAERS Safety Report 13985430 (Version 1)
Quarter: 2017Q3

REPORT INFORMATION
  Report Type: Spontaneous
  Country: BR (occurrence: BR)
  Receive Date: 20170919
  Receipt Date: 20170919
  Transmission Date: 20171128
  Serious: Yes (Other)
  Sender: FDA-Public Use
  Company Number: BR-009507513-1709BRA007913

PATIENT
  Sex: Female

DRUGS (1)
  1. NUVARING [Suspect]
     Active Substance: ETHINYL ESTRADIOL\ETONOGESTREL
     Dosage: 1 VAGINAL RING, UNK
     Route: 067
     Dates: start: 201704

REACTIONS (2)
  - Unintended pregnancy [Unknown]
  - Pregnancy with contraceptive device [Unknown]

NARRATIVE: CASE EVENT DATE: 201706
